FAERS Safety Report 6938759-1 (Version None)
Quarter: 2010Q3

REPORT INFORMATION
  Report Type: 
  Country: None (occurrence: None)
  Receive Date: 20100819
  Receipt Date: 20100802
  Transmission Date: 20110219
  Serious: Yes (Hospitalization)
  Sender: FDA-Public Use
  Company Number: 2010P1000627

PATIENT
  Age: 90 Year
  Sex: Male

DRUGS (4)
  1. AMIODARONE (NO PREF. NAME) [Suspect]
     Indication: ATRIAL FIBRILLATION
     Dosage: 200 MG; QD; PO
     Route: 048
  2. ATORVASTATIN (NO PREF. NAME) [Suspect]
     Indication: HYPERCHOLESTEROLAEMIA
  3. WARFARIN SODIUM [Concomitant]
  4. INSULIN [Concomitant]

REACTIONS (27)
  - ALANINE AMINOTRANSFERASE INCREASED [None]
  - APHASIA [None]
  - ASPARTATE AMINOTRANSFERASE INCREASED [None]
  - ASTHENIA [None]
  - ATAXIA [None]
  - BLOOD ALKALINE PHOSPHATASE INCREASED [None]
  - BLOOD BILIRUBIN INCREASED [None]
  - BLOOD CREATINE INCREASED [None]
  - BLOOD PRESSURE SYSTOLIC INCREASED [None]
  - BLOOD UREA INCREASED [None]
  - CONFUSIONAL STATE [None]
  - DIZZINESS [None]
  - DYSSTASIA [None]
  - GAIT DISTURBANCE [None]
  - GAMMA-GLUTAMYLTRANSFERASE INCREASED [None]
  - HEPATIC FUNCTION ABNORMAL [None]
  - HEPATIC STEATOSIS [None]
  - HEPATOTOXICITY [None]
  - HYPERAMMONAEMIA [None]
  - MALAISE [None]
  - MENTAL STATUS CHANGES [None]
  - MUSCLE TWITCHING [None]
  - MYOCLONUS [None]
  - NAUSEA [None]
  - NEUROTOXICITY [None]
  - SENSORY DISTURBANCE [None]
  - VOMITING [None]
